FAERS Safety Report 21191947 (Version 1)
Quarter: 2022Q3

REPORT INFORMATION
  Report Type: Report from Study
  Country: IE (occurrence: IE)
  Receive Date: 20220809
  Receipt Date: 20220809
  Transmission Date: 20221027
  Serious: Yes (Hospitalization)
  Sender: FDA-Public Use
  Company Number: IE-BAXTER-2022BAX016550

PATIENT
  Age: 44 Year
  Sex: Male

DRUGS (13)
  1. WATER FOR INJECTION [Suspect]
     Active Substance: WATER
     Indication: Parenteral nutrition
     Dosage: (M,W,T,S) FOUR TIMES IN WEEK
     Route: 042
     Dates: start: 202112
  2. OLIVE OIL\SOYBEAN OIL [Suspect]
     Active Substance: OLIVE OIL\SOYBEAN OIL
     Indication: Parenteral nutrition
     Dosage: (M,W,T,S) FOUR TIMES IN WEEK
     Route: 042
     Dates: start: 202112
  3. DEXTROSE [Suspect]
     Active Substance: DEXTROSE
     Indication: Parenteral nutrition
     Dosage: (M,W,T,S) FOUR TIMES IN WEEK
     Route: 042
     Dates: start: 202112
  4. CERNEVIT [Suspect]
     Active Substance: VITAMINS
     Indication: Parenteral nutrition
     Dosage: (M,W,T,S) FOUR TIMES IN WEEK
     Route: 042
     Dates: start: 202112
  5. SYNTHAMIN [Suspect]
     Active Substance: AMINO ACIDS
     Indication: Parenteral nutrition
     Dosage: (M,W,T,S) FOUR TIMES IN WEEK
     Route: 042
     Dates: start: 202112
  6. IRON\MINERALS\POTASSIUM IOD\SODIUM FLUORIDE\SODIUM MOLYBDATE\SODIUM SE [Suspect]
     Active Substance: IRON\MINERALS\POTASSIUM IOD\SODIUM FLUORIDE\SODIUM MOLYBDATE\SODIUM SELENITE\ZINC
     Indication: Parenteral nutrition
     Dosage: (M,W,T,S) FOUR TIMES IN WEEK
     Route: 042
     Dates: start: 202112
  7. CALCIUM CHLORIDE [Suspect]
     Active Substance: CALCIUM CHLORIDE
     Indication: Parenteral nutrition
     Dosage: 1 MMOL/ ML, (M,W,T,S) FOUR TIMES IN WEEK
     Route: 042
     Dates: start: 202112
  8. MAGNESIUM SULFATE [Suspect]
     Active Substance: MAGNESIUM SULFATE
     Indication: Parenteral nutrition
     Dosage: (M,W,T,S) FOUR TIMES IN WEEK
     Route: 042
     Dates: start: 202112
  9. POTASSIUM CHLORIDE [Suspect]
     Active Substance: POTASSIUM CHLORIDE
     Indication: Parenteral nutrition
     Dosage: 22%, (M,W,T,S) FOUR TIMES IN WEEK
     Route: 042
     Dates: start: 202112
  10. SODIUM CHLORIDE [Suspect]
     Active Substance: SODIUM CHLORIDE
     Indication: Parenteral nutrition
     Dosage: 23.5%, (M,W,T,S) FOUR TIMES IN WEEK
     Route: 042
     Dates: start: 202112
  11. SODIUM GLYCEROPHOSPHATE [Suspect]
     Active Substance: SODIUM GLYCEROPHOSPHATE
     Indication: Parenteral nutrition
     Dosage: SODIUM GLYCEROPHOSPHATE 30% (M,W,T,S) FOUR TIMES IN WEEK
     Route: 042
     Dates: start: 202112
  12. WATER FOR INJECTION [Suspect]
     Active Substance: WATER
     Indication: Parenteral nutrition
     Dosage: (M,W,T,S) FOUR TIMES IN WEEK
     Route: 042
     Dates: start: 202112
  13. UNSPECIFIED INGREDIENT [Suspect]
     Active Substance: UNSPECIFIED INGREDIENT
     Route: 065

REACTIONS (3)
  - Abdominal pain [Not Recovered/Not Resolved]
  - Abdominal distension [Not Recovered/Not Resolved]
  - Diarrhoea [Not Recovered/Not Resolved]

NARRATIVE: CASE EVENT DATE: 20220801
